FAERS Safety Report 17156369 (Version 1)
Quarter: 2019Q4

REPORT INFORMATION
  Report Type: Spontaneous
  Country: AU (occurrence: AU)
  Receive Date: 20191216
  Receipt Date: 20191216
  Transmission Date: 20200122
  Serious: Yes (Other)
  Sender: FDA-Public Use
  Company Number: AU-SUN PHARMACEUTICAL INDUSTRIES LTD-2019R1-229982

PATIENT
  Age: 57 Year
  Sex: Male

DRUGS (1)
  1. LANZOPRAN [Suspect]
     Active Substance: LANSOPRAZOLE
     Indication: HIATUS HERNIA
     Route: 065

REACTIONS (4)
  - Cardiac disorder [Unknown]
  - Left atrial dilatation [Unknown]
  - Fluid retention [Unknown]
  - Gastric cancer [Unknown]
